FAERS Safety Report 7420536-9 (Version None)
Quarter: 2011Q2

REPORT INFORMATION
  Report Type: 
  Country: None (occurrence: None)
  Receive Date: 20110418
  Receipt Date: 20110407
  Transmission Date: 20111010
  Serious: Yes (Hospitalization)
  Sender: FDA-Public Use
  Company Number: IT-ASTRAZENECA-2011SE16297

PATIENT
  Sex: Female

DRUGS (7)
  1. FUROSEMIDE [Concomitant]
     Dates: start: 20080101
  2. PERINDOPRIL [Concomitant]
     Route: 048
     Dates: start: 20080101
  3. SERTRALINE HYDROCHLORIDE [Concomitant]
     Dates: start: 20080101
  4. CRESTOR [Suspect]
     Indication: DYSLIPIDAEMIA
     Route: 048
     Dates: start: 20110306, end: 20110308
  5. METOPROLOL SUCCINATE [Concomitant]
     Route: 048
     Dates: start: 20080101
  6. WARFARIN SODIUM [Concomitant]
     Dates: start: 20080101
  7. PROCORALAN [Concomitant]
     Route: 048
     Dates: start: 20101201

REACTIONS (2)
  - URTICARIA [None]
  - CUTANEOUS VASCULITIS [None]
